FAERS Safety Report 16389588 (Version 2)
Quarter: 2019Q2

REPORT INFORMATION
  Report Type: Report from Study
  Country: TW (occurrence: TW)
  Receive Date: 20190604
  Receipt Date: 20190621
  Transmission Date: 20190711
  Serious: Yes (Hospitalization, Other)
  Sender: FDA-Public Use
  Company Number: TW-UCBSA-2019022573

PATIENT
  Age: 69 Year
  Sex: Female
  Weight: 46.5 kg

DRUGS (4)
  1. MTX [Concomitant]
     Active Substance: METHOTREXATE SODIUM
     Indication: RHEUMATOID ARTHRITIS
     Dosage: 7.5 MILLIGRAM, WEEKLY (QW)
     Route: 048
     Dates: start: 20180313
  2. CERTOLIZUMAB PEGOL [Suspect]
     Active Substance: CERTOLIZUMAB PEGOL
     Indication: RHEUMATOID ARTHRITIS
     Dosage: 400 MILLIGRAM, EV 4 WEEKS
     Route: 058
     Dates: start: 20190124
  3. METHYLPREDNISOLONE. [Concomitant]
     Active Substance: METHYLPREDNISOLONE
     Indication: RHEUMATOID ARTHRITIS
     Dosage: 4 MILLIGRAM, ONCE DAILY (QD)
     Route: 048
     Dates: start: 20180116
  4. ASPIRIN. [Concomitant]
     Active Substance: ASPIRIN
     Indication: PRODUCT USED FOR UNKNOWN INDICATION
     Dosage: 100 MILLIGRAM, EV 2 DAYS (QOD)
     Route: 048
     Dates: start: 20180605

REACTIONS (2)
  - Otitis media chronic [Recovering/Resolving]
  - Off label use [Unknown]

NARRATIVE: CASE EVENT DATE: 20190124
